FAERS Safety Report 4567296-7 (Version None)
Quarter: 2005Q1

REPORT INFORMATION
  Report Type: 
  Country: None (occurrence: None)
  Receive Date: 20050127
  Receipt Date: 20050118
  Transmission Date: 20050727
  Serious: Yes (Other)
  Sender: FDA-Public Use
  Company Number: 2005015218

PATIENT
  Age: 27 Year
  Sex: Female
  Weight: 70.7611 kg

DRUGS (3)
  1. DETROL LA [Suspect]
     Indication: AUTOMATIC BLADDER
     Dosage: 4 MG (4 MG QD) ORAL
     Route: 048
     Dates: start: 20040101
  2. ALL OTHER NON-THERAPEUTIC PRODUCTS (ALL OTHER NON-THERAPEUTIC PRODUCTS [Concomitant]
  3. CONLUNETT (MESTRANOL, NORETHISTERONE) [Concomitant]

REACTIONS (4)
  - ABDOMINAL PAIN [None]
  - CONVULSION [None]
  - INCONTINENCE [None]
  - JOINT SWELLING [None]
